FAERS Safety Report 25871436 (Version 2)
Quarter: 2025Q4

REPORT INFORMATION
  Report Type: Report from Study
  Country: EU (occurrence: EU)
  Receive Date: 20251001
  Receipt Date: 20251021
  Transmission Date: 20260118
  Serious: Yes (Hospitalization, Other)
  Sender: BRISTOL-MYERS SQUIBB COMPANY
  Company Number: EU-BRISTOL-MYERS SQUIBB COMPANY-2025-133024

PATIENT
  Age: 63 Year
  Sex: Female
  Weight: 58 kg

DRUGS (2)
  1. REPOTRECTINIB [Suspect]
     Active Substance: REPOTRECTINIB
     Indication: Non-small cell lung cancer
     Dosage: 4 TABLETS TWICE A DAY
     Dates: start: 20241002, end: 20250903
  2. REPOTRECTINIB [Suspect]
     Active Substance: REPOTRECTINIB
     Indication: ROS1 gene rearrangement
     Dosage: TWICE/DAY
     Dates: start: 20250908

REACTIONS (3)
  - Neurotoxicity [Recovered/Resolved]
  - Pulmonary embolism [Recovering/Resolving]
  - Fall [Recovered/Resolved]

NARRATIVE: CASE EVENT DATE: 20250903
